FAERS Safety Report 9028465 (Version 1)
Quarter: 2013Q1

REPORT INFORMATION
  Report Type: Spontaneous
  Country: US (occurrence: US)
  Receive Date: 20130124
  Receipt Date: 20130124
  Transmission Date: 20140127
  Serious: No
  Sender: FDA-Public Use
  Company Number: US-JNJFOC-20130109188

PATIENT
  Age: 51 None
  Sex: Female
  Weight: 59.88 kg

DRUGS (4)
  1. SANDOZ FENTANYL TRANSDERMAL SYSTEM [Suspect]
     Indication: SCOLIOSIS
     Route: 062
     Dates: start: 20121211
  2. PERCOCET [Concomitant]
     Indication: BREAKTHROUGH PAIN
     Dosage: 10/325 MG AS NEEDED
     Route: 048
     Dates: start: 2012
  3. NEURONTIN [Concomitant]
     Indication: NEURALGIA
     Route: 048
  4. ZYPREXA [Concomitant]
     Indication: NERVOUSNESS
     Dosage: HALF OF A 2.5 MG TABLET
     Route: 048

REACTIONS (9)
  - Abnormal loss of weight [Not Recovered/Not Resolved]
  - Irritable bowel syndrome [Not Recovered/Not Resolved]
  - Rash pruritic [Not Recovered/Not Resolved]
  - Application site rash [Not Recovered/Not Resolved]
  - Pain [Recovered/Resolved]
  - Application site reaction [Not Recovered/Not Resolved]
  - Drug dose omission [Recovered/Resolved]
  - Application site discharge [Not Recovered/Not Resolved]
  - Incorrect drug administration duration [Recovered/Resolved]
